FAERS Safety Report 5487327-X (Version None)
Quarter: 2007Q4

REPORT INFORMATION
  Report Type: 
  Country: None (occurrence: None)
  Receive Date: 20071015
  Receipt Date: 20071004
  Transmission Date: 20080405
  Serious: Yes (Other)
  Sender: FDA-Public Use
  Company Number: 2007US002049

PATIENT
  Age: 11 Month
  Sex: Male

DRUGS (6)
  1. PROTOPIC [Suspect]
     Indication: STEM CELL TRANSPLANT
     Dosage: TOPICAL
     Route: 061
  2. PROGRAF [Suspect]
     Indication: STEM CELL TRANSPLANT
     Dosage: 0.15 MG/KG, UID/QD, ORAL; 0.05 MG/KG, UID/QD, ORAL
     Route: 048
  3. MYCOPHENOLATE MOFETIL [Concomitant]
  4. INFLIXIMAB (INFLIXIMAB) [Concomitant]
  5. DACLIZUMAB (DACLIZUMAB) [Concomitant]
  6. THYMOGLOBULIN [Concomitant]

REACTIONS (2)
  - DIARRHOEA [None]
  - DRUG TOXICITY [None]
